FAERS Safety Report 7789540-5 (Version None)
Quarter: 2011Q3

REPORT INFORMATION
  Report Type: 
  Country: None (occurrence: None)
  Receive Date: 20110930
  Receipt Date: 20110919
  Transmission Date: 20111222
  Serious: No
  Sender: FDA-Public Use
  Company Number: US-JNJFOC-20110902861

PATIENT
  Sex: Male
  Weight: 88.45 kg

DRUGS (11)
  1. DURAGESIC-100 [Suspect]
     Route: 062
     Dates: start: 20110501, end: 20110601
  2. HYDROCODONE [Concomitant]
     Indication: BREAKTHROUGH PAIN
     Route: 048
     Dates: start: 20040101
  3. DURAGESIC-100 [Suspect]
     Route: 062
     Dates: start: 20110501, end: 20110601
  4. XANAX [Concomitant]
     Indication: MUSCLE SPASMS
     Route: 048
     Dates: start: 20050101
  5. DURAGESIC-100 [Suspect]
     Route: 062
     Dates: start: 20110501, end: 20110601
  6. DURAGESIC-100 [Suspect]
     Indication: PAIN
     Route: 062
     Dates: start: 20110601
  7. DURAGESIC-100 [Suspect]
     Route: 062
     Dates: start: 20110101
  8. DURAGESIC-100 [Suspect]
     Indication: SPINAL DISORDER
     Route: 062
     Dates: start: 20110601
  9. DURAGESIC-100 [Suspect]
     Route: 062
     Dates: start: 20110101
  10. DURAGESIC-100 [Suspect]
     Indication: INTERVERTEBRAL DISC DEGENERATION
     Route: 062
     Dates: start: 20110601
  11. DURAGESIC-100 [Suspect]
     Route: 062
     Dates: start: 20110101

REACTIONS (5)
  - THERAPEUTIC RESPONSE DECREASED [None]
  - PRODUCT ADHESION ISSUE [None]
  - INCORRECT DRUG ADMINISTRATION RATE [None]
  - WRONG TECHNIQUE IN DRUG USAGE PROCESS [None]
  - DRUG INEFFECTIVE [None]
